FAERS Safety Report 25932762 (Version 1)
Quarter: 2025Q4

REPORT INFORMATION
  Report Type: Spontaneous
  Country: US (occurrence: US)
  Receive Date: 20251017
  Receipt Date: 20251017
  Transmission Date: 20260117
  Serious: No
  Sender: Kenvue
  Company Number: US-KENVUE-20250913223

PATIENT
  Sex: Male

DRUGS (1)
  1. TYLENOL [Suspect]
     Active Substance: ACETAMINOPHEN
     Indication: Product used for unknown indication
     Dosage: TOOK A FEW TYLENOL
     Route: 064

REACTIONS (4)
  - Attention deficit hyperactivity disorder [Unknown]
  - Anxiety [Unknown]
  - Executive dysfunction [Unknown]
  - Foetal exposure during pregnancy [Unknown]
